FAERS Safety Report 9369381 (Version 1)
Quarter: 2013Q2

REPORT INFORMATION
  Report Type: Spontaneous
  Country: US (occurrence: None)
  Receive Date: 20130625
  Receipt Date: 20130625
  Transmission Date: 20140414
  Serious: Yes (Disabling)
  Sender: FDA-Public Use
  Company Number: None

PATIENT
  Age: 62 Year
  Sex: Female
  Weight: 70.31 kg

DRUGS (18)
  1. MONTELUKAST [Suspect]
     Indication: ASTHMA
     Route: 048
     Dates: start: 20121018, end: 20121031
  2. MONTELUKAST [Suspect]
     Indication: URTICARIA
     Route: 048
     Dates: start: 20121018, end: 20121031
  3. MONTELUKAST [Suspect]
     Indication: MULTIPLE ALLERGIES
     Route: 048
     Dates: start: 20121018, end: 20121031
  4. ARMOUR THYROID [Concomitant]
  5. SINGULAIR [Concomitant]
  6. EVOXAC [Concomitant]
  7. REQUIP [Concomitant]
  8. FOLIC ACID [Concomitant]
  9. VIT. D [Concomitant]
  10. CELEBREX [Concomitant]
  11. BIPAP [Concomitant]
  12. ALBUTEROL [Concomitant]
  13. CALCIUM/MNERALS [Concomitant]
  14. FISH OIL [Concomitant]
  15. OLIVE LEAF NASAL SPRAY [Concomitant]
  16. SALINE NASAL LAVAGE [Concomitant]
  17. EPI PEN [Concomitant]
  18. ZYRTEC [Concomitant]

REACTIONS (3)
  - Dyspnoea [None]
  - Drug ineffective [None]
  - Product substitution issue [None]
